FAERS Safety Report 21087343 (Version 2)
Quarter: 2022Q3

REPORT INFORMATION
  Report Type: Spontaneous
  Country: FR (occurrence: None)
  Receive Date: 20220715
  Receipt Date: 20220908
  Transmission Date: 20221027
  Serious: Yes (Other)
  Sender: FDA-Public Use
  Company Number: 2022A251478

PATIENT
  Sex: Female

DRUGS (1)
  1. IMFINZI [Suspect]
     Active Substance: DURVALUMAB
     Indication: Small cell lung cancer
     Route: 041
     Dates: start: 20220705

REACTIONS (2)
  - Acute pulmonary oedema [Recovering/Resolving]
  - Bladder dilatation [Recovering/Resolving]

NARRATIVE: CASE EVENT DATE: 20220706
